FAERS Safety Report 6761798-0 (Version None)
Quarter: 2010Q2

REPORT INFORMATION
  Report Type: 
  Country: None (occurrence: None)
  Receive Date: 20100609
  Receipt Date: 20100526
  Transmission Date: 20101027
  Serious: No
  Sender: FDA-Public Use
  Company Number: US-B.I. PHARMACEUTICALS,INC./RIDGEFIELD-2010-BP-04062BP

PATIENT
  Age: 55 Year
  Sex: Male
  Weight: 80.29 kg

DRUGS (2)
  1. MICARDIS [Suspect]
     Dates: end: 20100402
  2. VENTOLIN [Concomitant]

REACTIONS (6)
  - CHEST DISCOMFORT [None]
  - CHEST PAIN [None]
  - DIZZINESS [None]
  - DYSPNOEA [None]
  - FEELING ABNORMAL [None]
  - NAUSEA [None]
